FAERS Safety Report 8713855 (Version 3)
Quarter: 2012Q4

REPORT INFORMATION
  Report Type: 
  Country: US (occurrence: US)
  Receive Date: 20120808
  Receipt Date: 20120828
  Transmission Date: 20130627
  Serious: Yes (Other)
  Sender: FDA-Public Use
  Company Number: US-GILEAD-2012-0059238

PATIENT
  Sex: Female

DRUGS (2)
  1. LETAIRIS [Suspect]
     Indication: PULMONARY HYPERTENSION
     Dosage: 10 mg, UNK
     Route: 048
     Dates: start: 20080306
  2. LETAIRIS [Suspect]
     Indication: HEART DISEASE CONGENITAL

REACTIONS (1)
  - Abortion induced [Unknown]
